FAERS Safety Report 5771908-X (Version None)
Quarter: 2008Q2

REPORT INFORMATION
  Report Type: 
  Country: None (occurrence: None)
  Receive Date: 20080613
  Receipt Date: 20080605
  Transmission Date: 20081010
  Serious: Yes (Other)
  Sender: FDA-Public Use
  Company Number: PHHY2008PK10041

PATIENT
  Age: 60 Year
  Sex: Female
  Weight: 50 kg

DRUGS (1)
  1. COTAREG T32564+TAB [Suspect]
     Indication: HYPERTENSION
     Dosage: 160/12.5 OD
     Route: 048
     Dates: start: 20070902, end: 20080303

REACTIONS (1)
  - HYPERCALCAEMIA [None]
